APPROVED DRUG PRODUCT: DONEPEZIL HYDROCHLORIDE
Active Ingredient: DONEPEZIL HYDROCHLORIDE
Strength: 5MG
Dosage Form/Route: TABLET;ORAL
Application: A090551 | Product #001 | TE Code: AB
Applicant: NOVITIUM PHARMA LLC
Approved: May 31, 2011 | RLD: No | RS: No | Type: RX